FAERS Safety Report 13821305 (Version 1)
Quarter: 2017Q3

REPORT INFORMATION
  Report Type: Spontaneous
  Country: CH (occurrence: CH)
  Receive Date: 20170801
  Receipt Date: 20170801
  Transmission Date: 20171127
  Serious: Yes (Hospitalization)
  Sender: FDA-Public Use
  Company Number: CH-BAYER-2017-138579

PATIENT
  Age: 72 Year
  Sex: Female

DRUGS (10)
  1. COSAAR [Concomitant]
     Active Substance: LOSARTAN POTASSIUM
     Indication: HYPERTENSION
     Dosage: 25 MG, QD
     Route: 048
  2. GENTAMICIN SULFATE [GENTAMICIN SULFATE] [Suspect]
     Active Substance: GENTAMICIN SULFATE
     Indication: ANAL ABSCESS
     Dosage: 240 MG, QD
     Route: 041
     Dates: start: 20161229, end: 20170101
  3. TORASEMID [Concomitant]
     Active Substance: TORSEMIDE
     Indication: HYPERTENSION
     Dosage: 15 MG, QD
     Route: 048
  4. FLAGYL [Suspect]
     Active Substance: METRONIDAZOLE\METRONIDAZOLE HYDROCHLORIDE
     Indication: ANAL ABSCESS
     Dosage: 500 MG, TID
     Route: 048
     Dates: start: 20161229, end: 20170103
  5. BELOC ZOK [Concomitant]
     Active Substance: METOPROLOL SUCCINATE
     Indication: HYPERTENSION
     Dosage: 25 MG, QD
     Route: 048
  6. VANCOMYCIN [Concomitant]
     Active Substance: VANCOMYCIN
     Indication: ENTEROCOCCUS TEST POSITIVE
     Dosage: UNK
     Route: 042
     Dates: start: 20170110, end: 20170119
  7. CIPROXIN 500 MG [Suspect]
     Active Substance: CIPROFLOXACIN
     Indication: ANAL ABSCESS
     Dosage: 500 MG, BID
     Route: 048
     Dates: start: 20161229, end: 20170103
  8. ALDACTONE [Concomitant]
     Active Substance: SPIRONOLACTONE
     Indication: HYPERTENSION
     Dosage: 25 MG, QD
     Route: 048
  9. MARCOUMAR [Concomitant]
     Active Substance: PHENPROCOUMON
     Dosage: 1 DF, QD
     Route: 048
  10. PANTOZOL [Concomitant]
     Active Substance: PANTOPRAZOLE SODIUM
     Dosage: 20 MG, QD
     Route: 048

REACTIONS (5)
  - Drug reaction with eosinophilia and systemic symptoms [Recovering/Resolving]
  - Erythema [Recovering/Resolving]
  - Dermatitis exfoliative [Recovering/Resolving]
  - Hypersensitivity [Recovering/Resolving]
  - Human herpesvirus 6 infection [Recovering/Resolving]

NARRATIVE: CASE EVENT DATE: 201701
